FAERS Safety Report 6580056-0 (Version None)
Quarter: 2010Q1

REPORT INFORMATION
  Report Type: 
  Country: None (occurrence: None)
  Receive Date: 20100212
  Receipt Date: 20100201
  Transmission Date: 20100710
  Serious: Yes (Life-Threatening, Hospitalization)
  Sender: FDA-Public Use
  Company Number: GB-WATSON-2010-01417

PATIENT
  Age: 73 Year
  Sex: Female

DRUGS (3)
  1. SIMVASTATIN [Suspect]
     Indication: HYPERCHOLESTEROLAEMIA
     Dosage: 80 MG, DAILY
     Route: 048
     Dates: start: 20091123, end: 20100121
  2. DOXYCYCLINE [Suspect]
     Indication: LOWER RESPIRATORY TRACT INFECTION
     Dosage: 100 MG, UNKNOWN
     Route: 048
     Dates: start: 20100105, end: 20100119
  3. PSEUDOEPHEDRINE [Suspect]
     Indication: NASAL DECONGESTION THERAPY
     Dosage: 60 MG, TID
     Route: 048
     Dates: start: 20100105, end: 20100112

REACTIONS (4)
  - DYSGEUSIA [None]
  - LIVER DISORDER [None]
  - MUSCLE SPASMS [None]
  - RENAL IMPAIRMENT [None]
